FAERS Safety Report 23296497 (Version 1)
Quarter: 2023Q4

REPORT INFORMATION
  Report Type: Spontaneous
  Country: IT (occurrence: IT)
  Receive Date: 20231214
  Receipt Date: 20231214
  Transmission Date: 20240109
  Serious: Yes (Death, Other)
  Sender: FDA-Public Use
  Company Number: IT-009507513-2312ITA004853

PATIENT
  Age: 63 Year
  Sex: Female

DRUGS (4)
  1. CEFTOLOZANE SULFATE\TAZOBACTAM SODIUM [Suspect]
     Active Substance: CEFTOLOZANE SULFATE\TAZOBACTAM SODIUM
     Indication: Delftia acidovorans infection
     Dosage: 1G/0.5G, Q8H
  2. AVIBACTAM SODIUM\CEFTAZIDIME [Suspect]
     Active Substance: AVIBACTAM SODIUM\CEFTAZIDIME
     Indication: Delftia acidovorans infection
     Dosage: 0.5G/2G, Q8H
  3. MEROPENEM [Concomitant]
     Active Substance: MEROPENEM
     Indication: Delftia acidovorans infection
     Dosage: 1 GRAM, Q8H
  4. LEVOFLOXACIN [Concomitant]
     Active Substance: LEVOFLOXACIN
     Indication: Delftia acidovorans infection
     Dosage: 500 MILLIGRAM, Q12H

REACTIONS (4)
  - Septic shock [Fatal]
  - Septic shock [Unknown]
  - Product use in unapproved indication [Unknown]
  - Product contamination [Unknown]
